FAERS Safety Report 23037318 (Version 2)
Quarter: 2023Q4

REPORT INFORMATION
  Report Type: Spontaneous
  Country: AT (occurrence: None)
  Receive Date: 20231006
  Receipt Date: 20231025
  Transmission Date: 20240110
  Serious: Yes (Other)
  Sender: FDA-Public Use
  Company Number: AT-ROCHE-3433903

PATIENT
  Age: 55 Year
  Sex: Female

DRUGS (5)
  1. GAVRETO [Suspect]
     Active Substance: PRALSETINIB
     Indication: Non-small cell lung cancer
     Route: 048
     Dates: start: 202205, end: 202212
  2. BLEOMYCIN [Suspect]
     Active Substance: BLEOMYCIN SULFATE
     Indication: Non-small cell lung cancer
     Route: 065
     Dates: start: 202205
  3. VINDESINE [Suspect]
     Active Substance: VINDESINE
     Indication: Non-small cell lung cancer
     Route: 065
     Dates: start: 202205
  4. LOMUSTINE [Suspect]
     Active Substance: LOMUSTINE
     Indication: Non-small cell lung cancer
     Route: 065
     Dates: start: 202205
  5. XGEVA [Suspect]
     Active Substance: DENOSUMAB
     Indication: Non-small cell lung cancer
     Route: 065
     Dates: start: 202205

REACTIONS (1)
  - Disease progression [Unknown]

NARRATIVE: CASE EVENT DATE: 20230501
